FAERS Safety Report 23506598 (Version 1)
Quarter: 2024Q1

REPORT INFORMATION
  Report Type: Spontaneous
  Country: JP (occurrence: JP)
  Receive Date: 20240209
  Receipt Date: 20240209
  Transmission Date: 20240410
  Serious: Yes (Other)
  Sender: FDA-Public Use
  Company Number: JP-PFIZER INC-PV202400017435

PATIENT
  Age: 6 Decade
  Sex: Female
  Weight: 54.2 kg

DRUGS (5)
  1. OXALIPLATIN [Suspect]
     Active Substance: OXALIPLATIN
     Dosage: 85 MG/M2, CYCLIC (12 COURSES)
  2. LEVOLEUCOVORIN CALCIUM [Suspect]
     Active Substance: LEVOLEUCOVORIN CALCIUM
     Dosage: 200 MG/M2, CYCLIC (12 COURSES)
  3. IRINOTECAN HYDROCHLORIDE [Suspect]
     Active Substance: IRINOTECAN HYDROCHLORIDE
     Dosage: 165 MG/M2, CYCLIC (12 COURSES)
  4. FLUOROURACIL [Suspect]
     Active Substance: FLUOROURACIL
     Dosage: 3200 MG/M2, CYCLIC (12 COURSES)
  5. PANITUMUMAB [Suspect]
     Active Substance: PANITUMUMAB
     Dosage: 6 MG/KG, CYCLIC (12 COURSES)

REACTIONS (3)
  - Neuropathy peripheral [Unknown]
  - Diarrhoea [Unknown]
  - Malaise [Unknown]
